FAERS Safety Report 7572018-1 (Version None)
Quarter: 2011Q2

REPORT INFORMATION
  Report Type: 
  Country: None (occurrence: None)
  Receive Date: 20110620
  Receipt Date: 20110607
  Transmission Date: 20111010
  Serious: Yes (Death)
  Sender: FDA-Public Use
  Company Number: UTC-007725

PATIENT
  Age: 49 Year
  Sex: Female

DRUGS (1)
  1. REMODULIN [Suspect]
     Indication: PULMONARY ARTERIAL HYPERTENSION
     Dosage: (TIRATION), INTRAVENOUS
     Route: 042
     Dates: start: 20110520

REACTIONS (1)
  - DEATH [None]
